FAERS Safety Report 15433263 (Version 1)
Quarter: 2018Q3

REPORT INFORMATION
  Report Type: Spontaneous
  Country: US (occurrence: US)
  Receive Date: 20180927
  Receipt Date: 20180927
  Transmission Date: 20181010
  Serious: Yes (Other)
  Sender: FDA-Public Use
  Company Number: US-ASTRAZENECA-2018SF23669

PATIENT
  Age: 604 Month
  Sex: Female
  Weight: 59 kg

DRUGS (4)
  1. SEROQUEL [Suspect]
     Active Substance: QUETIAPINE FUMARATE
     Indication: BIPOLAR DISORDER
     Dosage: GENERIC FOR SEROQUEL MULTIPLE TIMES 400 MG AT NIGHT
     Route: 048
     Dates: start: 2016
  2. SEROQUEL [Suspect]
     Active Substance: QUETIAPINE FUMARATE
     Indication: BIPOLAR DISORDER
     Route: 048
  3. LAMICTAL [Concomitant]
     Active Substance: LAMOTRIGINE
     Indication: BIPOLAR DISORDER
     Route: 048
     Dates: start: 2006
  4. SEROQUEL [Suspect]
     Active Substance: QUETIAPINE FUMARATE
     Indication: BIPOLAR DISORDER
     Route: 048
     Dates: start: 2006

REACTIONS (7)
  - Upper limb fracture [Recovering/Resolving]
  - Abdominal discomfort [Unknown]
  - Fall [Recovering/Resolving]
  - Balance disorder [Unknown]
  - Dizziness [Unknown]
  - Joint dislocation [Recovered/Resolved]
  - Feeling abnormal [Unknown]

NARRATIVE: CASE EVENT DATE: 201709
